FAERS Safety Report 24353085 (Version 1)
Quarter: 2024Q3

REPORT INFORMATION
  Report Type: Report from Study
  Country: US (occurrence: US)
  Receive Date: 20240923
  Receipt Date: 20240923
  Transmission Date: 20241016
  Serious: No
  Sender: ROCHE
  Company Number: US-ROCHE-3474274

PATIENT
  Age: 59 Year
  Sex: Female

DRUGS (13)
  1. HERCEPTIN [Suspect]
     Active Substance: TRASTUZUMAB
     Indication: Endometrial cancer
     Dosage: DATE OF SERVICE: 09/AUG/2023, 30/AUG/2023, 20/SEP/2023, 11/OCT/2023 AND 01/NOV/2023 AT 721 MG AND 54
     Route: 041
  2. ASPIRIN [Concomitant]
     Active Substance: ASPIRIN
  3. CARBOPLATIN [Concomitant]
     Active Substance: CARBOPLATIN
  4. COENZYME Q10 [Concomitant]
     Active Substance: DIETARY SUPPLEMENT\UBIDECARENONE
  5. CRANBERRY [Concomitant]
     Active Substance: CRANBERRY
  6. CYANOCOBALAMIN [Concomitant]
     Active Substance: CYANOCOBALAMIN
  7. DEXAMETHASONE [Concomitant]
     Active Substance: DEXAMETHASONE
  8. DOCUSATE [Concomitant]
     Active Substance: DOCUSATE
  9. LYSINE [Concomitant]
     Active Substance: LYSINE
  10. METOCLOPRAMIDE [Concomitant]
     Active Substance: METOCLOPRAMIDE
  11. PACLITAXEL [Concomitant]
     Active Substance: PACLITAXEL
  12. POTASSIUM CHLORIDE [Concomitant]
     Active Substance: POTASSIUM CHLORIDE
  13. PRAVASTATIN [Concomitant]
     Active Substance: PRAVASTATIN

REACTIONS (2)
  - Off label use [Unknown]
  - No adverse event [Unknown]
